FAERS Safety Report 21312305 (Version 1)
Quarter: 2022Q3

REPORT INFORMATION
  Report Type: Spontaneous
  Country: US (occurrence: None)
  Receive Date: 20220909
  Receipt Date: 20220909
  Transmission Date: 20221027
  Serious: No
  Sender: FDA-Public Use
  Company Number: US-ARIS GLOBAL-202205-0923

PATIENT
  Sex: Male
  Weight: 74.910 kg

DRUGS (12)
  1. OXERVATE [Suspect]
     Active Substance: CENEGERMIN-BKBJ
     Indication: Neurotrophic keratopathy
     Route: 047
     Dates: start: 20220323
  2. CEFACLOR [Concomitant]
     Active Substance: CEFACLOR
  3. PILOCARPINE HYDROCHLORIDE [Concomitant]
     Active Substance: PILOCARPINE HYDROCHLORIDE
  4. OCUVITE EYE HEALTH [Concomitant]
  5. VITAMIN D3 [Concomitant]
     Active Substance: CHOLECALCIFEROL
  6. VITAMINS [Concomitant]
     Active Substance: VITAMINS
  7. TRIUMEQ [Concomitant]
     Active Substance: ABACAVIR SULFATE\DOLUTEGRAVIR SODIUM\LAMIVUDINE
     Dosage: 600-50-300
  8. LORAZEPAM [Concomitant]
     Active Substance: LORAZEPAM
     Dosage: 2 MG/ML
  9. ATENOLOL [Concomitant]
     Active Substance: ATENOLOL
  10. PANTOPRAZOLE SODIUM [Concomitant]
     Active Substance: PANTOPRAZOLE SODIUM
     Dosage: GRANPKT
  11. PERCOCET [Concomitant]
     Active Substance: ACETAMINOPHEN\OXYCODONE HYDROCHLORIDE
     Dosage: 5 MG-325MG
  12. EDURANT [Concomitant]
     Active Substance: RILPIVIRINE HYDROCHLORIDE

REACTIONS (2)
  - Eye pain [Unknown]
  - Dry eye [Recovering/Resolving]
